FAERS Safety Report 6896949-0 (Version None)
Quarter: 2010Q3

REPORT INFORMATION
  Report Type: 
  Country: None (occurrence: None)
  Receive Date: 20100802
  Receipt Date: 20070629
  Transmission Date: 20110219
  Serious: No
  Sender: FDA-Public Use
  Company Number: US-PFIZER INC-2007005769

PATIENT
  Sex: Male
  Weight: 136.08 kg

DRUGS (5)
  1. LYRICA [Suspect]
     Indication: BACK PAIN
     Route: 048
     Dates: start: 20061205
  2. LYRICA [Suspect]
     Indication: RADICULAR SYNDROME
  3. NEURONTIN [Suspect]
     Indication: BACK PAIN
     Route: 048
     Dates: start: 20070105, end: 20070110
  4. NEURONTIN [Suspect]
     Indication: RADICULAR SYNDROME
  5. ZIAC [Concomitant]
     Dosage: 6.25

REACTIONS (4)
  - EJACULATION DISORDER [None]
  - MOOD ALTERED [None]
  - NAUSEA [None]
  - OEDEMA PERIPHERAL [None]
